FAERS Safety Report 7912526-4 (Version None)
Quarter: 2011Q4

REPORT INFORMATION
  Report Type: 
  Country: None (occurrence: None)
  Receive Date: 20111114
  Receipt Date: 20111109
  Transmission Date: 20120403
  Serious: No
  Sender: FDA-Public Use
  Company Number: US-PFIZER INC-2011196901

PATIENT
  Sex: Female
  Weight: 16.7 kg

DRUGS (2)
  1. IBUPROFEN [Concomitant]
     Dosage: UNK
     Route: 065
  2. CHILDREN'S ADVIL COLD [Suspect]
     Indication: PYREXIA
     Dosage: UNK, AS NEEDED
     Route: 048
     Dates: start: 20110823, end: 20110824

REACTIONS (2)
  - VOMITING [None]
  - DRUG INEFFECTIVE [None]
